FAERS Safety Report 6030283-6 (Version None)
Quarter: 2009Q1

REPORT INFORMATION
  Report Type: 
  Country: None (occurrence: None)
  Receive Date: 20090105
  Receipt Date: 20090105
  Transmission Date: 20090719
  Serious: Yes (Other)
  Sender: FDA-Public Use
  Company Number: None

PATIENT
  Age: 25 Year
  Sex: Male
  Weight: 88.4514 kg

DRUGS (2)
  1. XYZAL [Suspect]
     Indication: MULTIPLE ALLERGIES
     Dosage: 2.5MG ONCE DAILY PO
     Route: 048
  2. CYMBALTA [Concomitant]

REACTIONS (3)
  - ERYTHEMA [None]
  - PRURITUS [None]
  - SCRATCH [None]
